FAERS Safety Report 9390436 (Version 1)
Quarter: 2013Q3

REPORT INFORMATION
  Report Type: Spontaneous
  Country: EG (occurrence: EG)
  Receive Date: 20130709
  Receipt Date: 20130709
  Transmission Date: 20140515
  Serious: Yes (Other)
  Sender: FDA-Public Use
  Company Number: EG-ROCHE-1245906

PATIENT
  Age: 28 Week
  Sex: Female
  Weight: .91 kg

DRUGS (2)
  1. LUCENTIS [Suspect]
     Indication: RETINOPATHY OF PREMATURITY
     Dosage: DOSE:0.2 MG IN 0.02 ML
     Route: 050
  2. LUCENTIS [Suspect]
     Indication: OFF LABEL USE

REACTIONS (2)
  - Retinopathy of prematurity [Not Recovered/Not Resolved]
  - Retinal neovascularisation [Not Recovered/Not Resolved]
